FAERS Safety Report 6649082-7 (Version None)
Quarter: 2010Q1

REPORT INFORMATION
  Report Type: 
  Country: None (occurrence: None)
  Receive Date: 20100324
  Receipt Date: 20100324
  Transmission Date: 20100710
  Serious: Yes (Other)
  Sender: FDA-Public Use
  Company Number: ES-ROXANE LABORATORIES, INC.-2009-DE-07032GD

PATIENT
  Sex: Female

DRUGS (2)
  1. CODEINE SULFATE [Suspect]
  2. MORPHINE [Suspect]

REACTIONS (1)
  - DRUG ABUSE [None]
